FAERS Safety Report 10646301 (Version 1)
Quarter: 2014Q4

REPORT INFORMATION
  Report Type: Spontaneous
  Country: US (occurrence: None)
  Receive Date: 20141205
  Receipt Date: 20141205
  Transmission Date: 20150529
  Serious: No
  Sender: FDA-Public Use
  Company Number: USA-2014103786

PATIENT
  Age: 61 Year
  Sex: Female
  Weight: 88.5 kg

DRUGS (2)
  1. POMALYST [Suspect]
     Active Substance: POMALIDOMIDE
     Indication: PLASMA CELL MYELOMA
     Dosage: 1 IN 1 D
     Route: 048
     Dates: start: 201304
  2. ADVIL (MEFENAMIC ACID) (UNKNOWN) [Concomitant]

REACTIONS (1)
  - Fibromyalgia [None]
